FAERS Safety Report 7263580-7 (Version None)
Quarter: 2011Q1

REPORT INFORMATION
  Report Type: 
  Country: None (occurrence: None)
  Receive Date: 20110130
  Receipt Date: 20101108
  Transmission Date: 20110831
  Serious: No
  Sender: FDA-Public Use
  Company Number: US-ABBOTT-10P-163-0683969-00

PATIENT
  Age: 48 Year
  Sex: Female

DRUGS (6)
  1. METOPROLOL [Concomitant]
     Indication: HYPERTENSION
  2. PERCOCET [Concomitant]
     Indication: PAIN
  3. CLONIDINE [Concomitant]
     Indication: HYPERTENSION
  4. AMITRIPTYLINE HCL [Concomitant]
     Indication: MIGRAINE
  5. HUMIRA [Suspect]
     Indication: RHEUMATOID ARTHRITIS
     Dates: start: 20100101
  6. HYDROCHLOROTHIAZIDE W/QUINAPRIL [Concomitant]
     Indication: HYPERTENSION
     Dosage: 20/25 MG

REACTIONS (3)
  - HEADACHE [None]
  - PRURITUS [None]
  - RASH [None]
